FAERS Safety Report 13397537 (Version 3)
Quarter: 2017Q2

REPORT INFORMATION
  Report Type: Spontaneous
  Country: US (occurrence: US)
  Receive Date: 20170403
  Receipt Date: 20170526
  Transmission Date: 20170830
  Serious: Yes (Other)
  Sender: FDA-Public Use
  Company Number: US-BAYER-2017-057660

PATIENT
  Age: 38 Year
  Sex: Female
  Weight: 106.12 kg

DRUGS (2)
  1. MIRENA [Suspect]
     Active Substance: LEVONORGESTREL
     Indication: CONTRACEPTION
     Dosage: 20 MCG/24HR, CONT
     Route: 015
     Dates: start: 20160224, end: 20170321
  2. MIRENA [Suspect]
     Active Substance: LEVONORGESTREL
     Indication: CONTRACEPTION
     Dosage: 20 MCG/24HR, CONT
     Route: 015
     Dates: start: 20130402, end: 20150626

REACTIONS (10)
  - Dysmenorrhoea [None]
  - Genital haemorrhage [None]
  - Device expulsion [None]
  - Abdominal pain lower [None]
  - Abdominal pain lower [None]
  - Menorrhagia [None]
  - Genital haemorrhage [None]
  - Device expulsion [None]
  - Menorrhagia [None]
  - Vaginal haemorrhage [Recovered/Resolved]

NARRATIVE: CASE EVENT DATE: 2015
